FAERS Safety Report 7773131-6 (Version None)
Quarter: 2011Q3

REPORT INFORMATION
  Report Type: 
  Country: None (occurrence: None)
  Receive Date: 20110922
  Receipt Date: 20100809
  Transmission Date: 20111222
  Serious: No
  Sender: FDA-Public Use
  Company Number: US-ASTRAZENECA-2007UW21480

PATIENT
  Age: 25 Year
  Sex: Male
  Weight: 98 kg

DRUGS (12)
  1. TRAZODONE HYDROCHLORIDE [Concomitant]
     Dosage: 150-300 MG AT NIGHT
     Route: 048
     Dates: start: 20050616
  2. ABILIFY [Concomitant]
     Route: 048
     Dates: start: 20050811
  3. FLUOXETINE [Concomitant]
     Route: 048
     Dates: start: 20050418
  4. SEROQUEL [Suspect]
     Route: 048
     Dates: start: 20060228
  5. SEROQUEL [Suspect]
     Route: 048
     Dates: start: 20070401
  6. DEPAKOTE [Concomitant]
     Route: 048
     Dates: start: 20050811
  7. RISPERDAL [Concomitant]
     Indication: BIPOLAR DISORDER
     Dates: start: 20040101
  8. ABILIFY [Concomitant]
     Dates: start: 20050101, end: 20060101
  9. GEODON [Concomitant]
     Dosage: 60-80 MG
     Dates: start: 20040101
  10. SEROQUEL [Suspect]
     Indication: BIPOLAR DISORDER
     Route: 048
     Dates: start: 20040211
  11. RISPERDAL [Concomitant]
     Route: 048
     Dates: start: 20050811
  12. SEROQUEL [Suspect]
     Route: 048
     Dates: start: 20060101, end: 20070301

REACTIONS (9)
  - SLEEP APNOEA SYNDROME [None]
  - TYPE 2 DIABETES MELLITUS [None]
  - GLUCOSE TOLERANCE IMPAIRED [None]
  - BLOOD CHOLESTEROL INCREASED [None]
  - SLEEP DISORDER [None]
  - INSOMNIA [None]
  - HYPERLIPIDAEMIA [None]
  - DIABETIC COMPLICATION [None]
  - DYSLIPIDAEMIA [None]
